FAERS Safety Report 4528937-3 (Version None)
Quarter: 2004Q4

REPORT INFORMATION
  Report Type: 
  Country: None (occurrence: None)
  Receive Date: 20041214
  Receipt Date: 20041129
  Transmission Date: 20050328
  Serious: Yes (Hospitalization, Other)
  Sender: FDA-Public Use
  Company Number: 15702

PATIENT
  Age: 61 Year
  Sex: Male
  Weight: 56.6996 kg

DRUGS (1)
  1. LEUCOVORIN CALCIUM [Suspect]
     Indication: COLORECTAL CANCER
     Dosage: 360MG OTHER
     Route: 050
     Dates: start: 20040413

REACTIONS (1)
  - PYREXIA [None]
